FAERS Safety Report 5732551-1 (Version None)
Quarter: 2008Q2

REPORT INFORMATION
  Report Type: 
  Country: None (occurrence: None)
  Receive Date: 20080507
  Receipt Date: 20080423
  Transmission Date: 20081010
  Serious: Yes (Hospitalization, Other)
  Sender: FDA-Public Use
  Company Number: JPKYO-S-20080030

PATIENT
  Age: 62 Year
  Sex: Female

DRUGS (2)
  1. NAVELBINE [Suspect]
     Indication: NON-SMALL CELL LUNG CANCER
     Dates: start: 20080321
  2. GEMCITABINE [Suspect]
     Indication: NON-SMALL CELL LUNG CANCER
     Dates: start: 20080321

REACTIONS (3)
  - DISSEMINATED INTRAVASCULAR COAGULATION [None]
  - METASTASES TO LIVER [None]
  - THROMBOCYTOPENIA [None]
